FAERS Safety Report 9535800 (Version 3)
Quarter: 2013Q4

REPORT INFORMATION
  Report Type: Spontaneous
  Country: IT (occurrence: IT)
  Receive Date: 20130919
  Receipt Date: 20131030
  Transmission Date: 20140711
  Serious: Yes (Hospitalization)
  Sender: FDA-Public Use
  Company Number: IT-ROCHE-1277319

PATIENT
  Age: 53 Year
  Sex: Female

DRUGS (6)
  1. AVASTIN [Suspect]
     Indication: COLON CANCER
     Route: 042
     Dates: start: 20130902, end: 20130902
  2. AVASTIN [Suspect]
     Route: 042
     Dates: start: 20130930
  3. XELODA [Suspect]
     Indication: COLON CANCER
     Route: 048
     Dates: start: 20130902, end: 20130902
  4. XELODA [Suspect]
     Route: 048
     Dates: start: 20130930
  5. OXALIPLATIN [Suspect]
     Indication: COLON CANCER
     Route: 042
     Dates: start: 20130902, end: 20130902
  6. OXALIPLATIN [Suspect]
     Route: 042
     Dates: start: 20130930

REACTIONS (3)
  - Anaphylactic reaction [Recovered/Resolved]
  - Laryngospasm [Recovered/Resolved]
  - Tachycardia [Recovered/Resolved]
